FAERS Safety Report 4755124-6 (Version None)
Quarter: 2005Q3

REPORT INFORMATION
  Report Type: 
  Country: None (occurrence: None)
  Receive Date: 20050829
  Receipt Date: 20050823
  Transmission Date: 20060218
  Serious: Yes (Other)
  Sender: FDA-Public Use
  Company Number: US-JNJFOC-20050701315

PATIENT
  Sex: Female
  Weight: 71.22 kg

DRUGS (6)
  1. REMICADE [Suspect]
  2. REMICADE [Suspect]
     Indication: ILEITIS
  3. REMICADE [Suspect]
     Indication: CROHN'S DISEASE
  4. 6-MP [Concomitant]
  5. ASACOL [Concomitant]
  6. PREDNISONE TAB [Concomitant]

REACTIONS (7)
  - INFUSION RELATED REACTION [None]
  - MUSCULAR WEAKNESS [None]
  - OEDEMA PERIPHERAL [None]
  - PAIN IN EXTREMITY [None]
  - PITTING OEDEMA [None]
  - PRURITUS [None]
  - RASH [None]
